FAERS Safety Report 11981548 (Version 1)
Quarter: 2016Q1

REPORT INFORMATION
  Report Type: Spontaneous
  Country: US (occurrence: US)
  Receive Date: 20160130
  Receipt Date: 20160130
  Transmission Date: 20160526
  Serious: No
  Sender: FDA-Public Use
  Company Number: US-FRESENIUS KABI-FK201501784

PATIENT
  Age: 57 Year
  Sex: Female

DRUGS (1)
  1. BACTERIOSTATIC WATER [Suspect]
     Active Substance: WATER
     Indication: SKIN COSMETIC PROCEDURE
     Route: 023
     Dates: start: 20150407, end: 20150407

REACTIONS (1)
  - Injection site pain [Recovered/Resolved]
